FAERS Safety Report 8608026 (Version 4)
Quarter: 2014Q1

REPORT INFORMATION
  Report Type: Spontaneous
  Country: US (occurrence: US)
  Receive Date: 20120611
  Receipt Date: 20140114
  Transmission Date: 20141002
  Serious: Yes (Hospitalization, Other)
  Sender: FDA-Public Use
  Company Number: US-ASTRAZENECA-2012SE35766

PATIENT
  Age: 17459 Day
  Sex: Female

DRUGS (16)
  1. PROAMATINE [Concomitant]
     Indication: ORTHOSTATIC HYPOTENSION
     Dosage: 1/2 TABLET TID
     Route: 048
     Dates: start: 20020220
  2. ANTACIDS [Concomitant]
  3. NEXIUM [Suspect]
     Indication: GASTROOESOPHAGEAL REFLUX DISEASE
     Route: 048
     Dates: start: 20020328
  4. NEXIUM [Suspect]
     Indication: GASTROOESOPHAGEAL REFLUX DISEASE
     Route: 048
     Dates: start: 200203, end: 201102
  5. NEXIUM [Suspect]
     Indication: GASTROOESOPHAGEAL REFLUX DISEASE
     Route: 048
     Dates: start: 200203, end: 201106
  6. NEXIUM [Suspect]
     Indication: GASTROOESOPHAGEAL REFLUX DISEASE
     Route: 048
     Dates: start: 20110607
  7. PRILOSEC OTC [Suspect]
     Indication: GASTROOESOPHAGEAL REFLUX DISEASE
     Dosage: DAILY
     Route: 048
  8. ENABLEX [Concomitant]
     Indication: URINARY INCONTINENCE
     Dates: start: 20110521
  9. PREVACID [Concomitant]
     Indication: GASTROOESOPHAGEAL REFLUX DISEASE
     Dosage: DAILY
  10. ACIPHEX [Concomitant]
     Indication: GASTROOESOPHAGEAL REFLUX DISEASE
     Dosage: DAILY
  11. ZEGERID [Concomitant]
     Indication: GASTROOESOPHAGEAL REFLUX DISEASE
     Dosage: DAILY
  12. ZANTAC/RANITIDINE [Concomitant]
     Dosage: OCCASIONALLY
  13. PEPCID OTC [Concomitant]
     Dosage: OCCASIONALLY
  14. TUMS [Concomitant]
     Indication: GASTROOESOPHAGEAL REFLUX DISEASE
  15. LORATADINE OTC [Concomitant]
  16. BLACK COHOSH [Concomitant]

REACTIONS (5)
  - Hip fracture [Unknown]
  - Femoral neck fracture [Unknown]
  - Femur fracture [Unknown]
  - Osteoporosis [Unknown]
  - Osteopenia [Unknown]
